FAERS Safety Report 23460160 (Version 1)
Quarter: 2024Q1

REPORT INFORMATION
  Report Type: Spontaneous
  Country: DE (occurrence: DE)
  Receive Date: 20240131
  Receipt Date: 20240131
  Transmission Date: 20240410
  Serious: Yes (Other)
  Sender: FDA-Public Use
  Company Number: DE-BRISTOL-MYERS SQUIBB COMPANY-2023-074346

PATIENT
  Age: 53 Year
  Sex: Male
  Weight: 76.7 kg

DRUGS (39)
  1. DOCETAXEL [Suspect]
     Active Substance: DOCETAXEL\DOCETAXEL ANHYDROUS
     Indication: Gastric cancer
     Dosage: 103 MG, Q2W
     Route: 042
     Dates: start: 20230504, end: 20230525
  2. DOCETAXEL [Suspect]
     Active Substance: DOCETAXEL\DOCETAXEL ANHYDROUS
     Dosage: 103 MG, Q2W
     Route: 042
     Dates: start: 20230420, end: 20230525
  3. FLUOROURACIL [Suspect]
     Active Substance: FLUOROURACIL
     Indication: Gastric cancer
     Dosage: 5300 MG, Q2W
     Route: 042
     Dates: start: 20230504
  4. FLUOROURACIL [Suspect]
     Active Substance: FLUOROURACIL
     Dosage: 5300 MG, Q2W
     Route: 042
     Dates: start: 20230420
  5. OXALIPLATIN [Suspect]
     Active Substance: OXALIPLATIN
     Indication: Gastric cancer
     Dosage: 170 MG, Q2W
     Route: 042
     Dates: start: 20230504
  6. OPDIVO [Suspect]
     Active Substance: NIVOLUMAB
     Indication: Gastric cancer
     Dosage: 240 MG, Q2W
     Route: 042
     Dates: start: 20230504
  7. OPDIVO [Suspect]
     Active Substance: NIVOLUMAB
     Dosage: 240 MG, Q2W
     Route: 042
     Dates: start: 20230420
  8. Cimetidin [Concomitant]
     Indication: Prophylaxis
     Dosage: 200 MG, QD
     Route: 017
     Dates: start: 20230914, end: 20230914
  9. Cimetidin [Concomitant]
     Dosage: 200 MG, QD
     Route: 017
     Dates: start: 20230928, end: 20230928
  10. Cimetidin [Concomitant]
     Dosage: 250 MG, QD
     Route: 017
     Dates: start: 20230615, end: 20230615
  11. CIMETIDINE [Concomitant]
     Active Substance: CIMETIDINE
     Indication: Prophylaxis
     Dosage: 200 MG
     Route: 017
     Dates: start: 20230615, end: 20230615
  12. DEXAMETHASONE [Concomitant]
     Active Substance: DEXAMETHASONE
     Indication: Prophylaxis
     Dosage: 8.000MG QD
     Route: 042
     Dates: start: 20230504, end: 20230504
  13. DEXAMETHASONE [Concomitant]
     Active Substance: DEXAMETHASONE
     Dosage: 8.000MG QD
     Route: 042
     Dates: start: 20230525, end: 20230525
  14. DEXAMETHASONE [Concomitant]
     Active Substance: DEXAMETHASONE
     Dosage: 8.000MG
     Route: 042
     Dates: start: 20230420, end: 20230420
  15. DEXAMETHASONE [Concomitant]
     Active Substance: DEXAMETHASONE
     Dosage: 8.000MG
     Route: 042
     Dates: start: 20230525, end: 20230525
  16. DEXAMETHASONE [Concomitant]
     Active Substance: DEXAMETHASONE
     Dosage: FREQUENCY- BIWEEKLY
     Route: 042
     Dates: start: 20230615
  17. LEUCOVORIN [Concomitant]
     Active Substance: LEUCOVORIN\LEUCOVORIN CALCIUM
     Dosage: BIWEEKLY
     Route: 042
     Dates: start: 20230615
  18. LEUCOVORIN [Concomitant]
     Active Substance: LEUCOVORIN\LEUCOVORIN CALCIUM
     Indication: Product used for unknown indication
     Dosage: 410.000MG QD
     Route: 042
     Dates: start: 20230504, end: 20230504
  19. LEUCOVORIN [Concomitant]
     Active Substance: LEUCOVORIN\LEUCOVORIN CALCIUM
     Dosage: 410.000MG
     Route: 042
     Dates: start: 20230420, end: 20230420
  20. LEUCOVORIN [Concomitant]
     Active Substance: LEUCOVORIN\LEUCOVORIN CALCIUM
     Dosage: 410.000MG
     Route: 042
     Dates: start: 20230525, end: 20230525
  21. GRANISETRON [Concomitant]
     Active Substance: GRANISETRON
     Indication: Prophylaxis
     Dosage: 3 MG, QD
     Route: 042
     Dates: start: 20230420, end: 20230420
  22. GRANISETRON [Concomitant]
     Active Substance: GRANISETRON
     Dosage: 3 MG, QD
     Route: 042
     Dates: start: 20230525, end: 20230525
  23. GRANISETRON [Concomitant]
     Active Substance: GRANISETRON
     Dosage: 3.000MG QD
     Route: 042
     Dates: start: 20230504, end: 20230504
  24. GRANISETRON [Concomitant]
     Active Substance: GRANISETRON
     Dosage: 3.00 MG
     Route: 042
     Dates: start: 20230525, end: 20230525
  25. GRANISETRON [Concomitant]
     Active Substance: GRANISETRON
     Dosage: BIWEEKLY
     Route: 042
     Dates: start: 20230615
  26. PANCRELIPASE [Concomitant]
     Active Substance: PANCRELIPASE
     Indication: Product used for unknown indication
     Dosage: 1000
     Route: 048
     Dates: start: 20230725
  27. LOPERAMIDE [Concomitant]
     Active Substance: LOPERAMIDE
     Indication: Prophylaxis
     Dosage: 2.000MG
     Route: 048
     Dates: start: 20230330
  28. LOPERAMIDE [Concomitant]
     Active Substance: LOPERAMIDE
     Dosage: FREQUENCY- 1
     Route: 048
     Dates: start: 20230403
  29. MCP [Concomitant]
     Active Substance: METOCLOPRAMIDE HYDROCHLORIDE
     Indication: Prophylaxis
     Dosage: 10 MG, QD
     Route: 017
     Dates: start: 20230615, end: 20230615
  30. NEULASTA [Concomitant]
     Active Substance: PEGFILGRASTIM
     Dosage: ROUTE : SUBDERMAL , BIWEEKLYUNK
     Route: 065
     Dates: start: 20230615
  31. NEULASTA [Concomitant]
     Active Substance: PEGFILGRASTIM
     Indication: Prophylaxis
     Dosage: ROUTE : SUBDERMALUNK
     Route: 065
     Dates: start: 20230525, end: 20230525
  32. NEULASTA [Concomitant]
     Active Substance: PEGFILGRASTIM
     Dosage: ROUTE : SUBDERMALUNK
     Route: 065
     Dates: start: 20230525, end: 20230525
  33. PANTOZOL [Concomitant]
     Active Substance: PANTOPRAZOLE SODIUM
     Indication: Prophylaxis
     Dosage: 40.000MG QD
     Route: 048
     Dates: start: 20230330
  34. PREDNISOLONE [Concomitant]
     Active Substance: PREDNISOLONE
     Indication: Product used for unknown indication
     Dosage: 50 MG, QD
     Route: 048
     Dates: start: 20230516, end: 20230524
  35. PREDNISOLONE SODIUM SUCCINATE [Concomitant]
     Active Substance: PREDNISOLONE SODIUM SUCCINATE
     Indication: Prophylaxis
     Dosage: 170 MG, Q2W
     Route: 042
     Dates: start: 20230420, end: 20230915
  36. CLEMASTINE FUMARATE [Concomitant]
     Active Substance: CLEMASTINE FUMARATE
     Indication: Prophylaxis
     Dosage: 2 MG, QD
     Route: 017
     Dates: start: 20230914, end: 20230914
  37. CLEMASTINE FUMARATE [Concomitant]
     Active Substance: CLEMASTINE FUMARATE
     Dosage: 2 MG, QD
     Route: 017
     Dates: start: 20230615, end: 20230615
  38. CLEMASTINE FUMARATE [Concomitant]
     Active Substance: CLEMASTINE FUMARATE
     Dosage: 2 MG, QD
     Route: 017
     Dates: start: 20230928, end: 20230928
  39. DIMENHYDRINATE [Concomitant]
     Active Substance: DIMENHYDRINATE
     Indication: Prophylaxis
     Dosage: 62.000MG QD
     Route: 017
     Dates: start: 20230615, end: 20230615

REACTIONS (8)
  - Dermatitis exfoliative generalised [Recovered/Resolved]
  - Neutropenia [Recovered/Resolved]
  - Leukopenia [Recovered/Resolved]
  - Hepatic enzyme increased [Recovered/Resolved]
  - Platelet count decreased [Recovered/Resolved]
  - Palmar-plantar erythrodysaesthesia syndrome [Recovered/Resolved]
  - Nausea [Recovered/Resolved]
  - Vomiting [Recovered/Resolved]

NARRATIVE: CASE EVENT DATE: 20230504
